FAERS Safety Report 7660285-5 (Version None)
Quarter: 2011Q3

REPORT INFORMATION
  Report Type: 
  Country: None (occurrence: None)
  Receive Date: 20110805
  Receipt Date: 20110805
  Transmission Date: 20111222
  Serious: Yes (Hospitalization)
  Sender: FDA-Public Use
  Company Number: AU-ABBOTT-11P-008-0721088-00

PATIENT
  Sex: Male
  Weight: 81 kg

DRUGS (7)
  1. BENZATHINE PENICILLIN G [Concomitant]
     Indication: PRODUCT USED FOR UNKNOWN INDICATION
     Dosage: WEEKLY X 3
     Route: 030
     Dates: start: 20101216, end: 20110104
  2. ACETAMINOPHEN W/ CODEINE [Concomitant]
     Indication: PRODUCT USED FOR UNKNOWN INDICATION
     Dosage: 1-2 TABS AS NEEDED
     Route: 048
     Dates: start: 20101214, end: 20101229
  3. VARENICLINE TARTRATE [Concomitant]
     Indication: PRODUCT USED FOR UNKNOWN INDICATION
     Dosage: 1 BD
     Route: 048
     Dates: start: 20110330
  4. ACETAMINOPHEN [Concomitant]
     Indication: PRODUCT USED FOR UNKNOWN INDICATION
     Route: 048
     Dates: start: 20101210, end: 20110108
  5. DARUNAVIR [Suspect]
     Indication: HIV INFECTION
     Dates: start: 20110108
  6. NORVIR [Suspect]
     Indication: HIV TEST POSITIVE
     Dates: start: 20110108
  7. TRUVADA [Suspect]
     Indication: HIV INFECTION
     Dosage: 300/200MG
     Dates: start: 20110108

REACTIONS (4)
  - BURKITT'S LYMPHOMA [None]
  - NON-HODGKIN'S LYMPHOMA [None]
  - LYMPHADENOPATHY [None]
  - ABDOMINAL PAIN [None]
